FAERS Safety Report 5684627-5 (Version None)
Quarter: 2008Q1

REPORT INFORMATION
  Report Type: 
  Country: None (occurrence: None)
  Receive Date: 20080328
  Receipt Date: 20080319
  Transmission Date: 20080703
  Serious: Yes (Other)
  Sender: FDA-Public Use
  Company Number: FR-ROCHE-550524

PATIENT
  Age: 32 Year
  Sex: Male
  Weight: 90 kg

DRUGS (3)
  1. PEGASYS [Suspect]
     Indication: HEPATITIS C
     Route: 058
     Dates: start: 20071225, end: 20080225
  2. LEVOTHYROXINE SODIUM [Concomitant]
     Indication: HYPOTHYROIDISM
  3. REBETOL [Concomitant]
     Indication: HEPATITIS C
     Dosage: 3 TABLET IN MORNING AND EVENING
     Route: 048
     Dates: start: 20080128

REACTIONS (1)
  - FACIAL PALSY [None]
